FAERS Safety Report 8234745-2 (Version None)
Quarter: 2012Q1

REPORT INFORMATION
  Report Type: 
  Country: None (occurrence: None)
  Receive Date: 20120322
  Receipt Date: 20120309
  Transmission Date: 20120608
  Serious: Yes (Other)
  Sender: FDA-Public Use
  Company Number: 2012AP000688

PATIENT
  Age: 25 Year
  Sex: Female

DRUGS (4)
  1. VENLAFAXINE [Suspect]
     Indication: DEPRESSION
  2. DIAZEPAM [Suspect]
     Indication: AKATHISIA
  3. CITALOPRAM HYDROBROMIDE [Suspect]
     Indication: MARITAL PROBLEM
  4. CANNABIS (CANNABIS SATIVA [Suspect]
     Indication: PRODUCT USED FOR UNKNOWN INDICATION

REACTIONS (9)
  - ABNORMAL BEHAVIOUR [None]
  - DRUG DEPENDENCE [None]
  - SELF-INJURIOUS IDEATION [None]
  - PHYSICAL ASSAULT [None]
  - SUICIDE ATTEMPT [None]
  - DEPRESSION [None]
  - ATTENTION-SEEKING BEHAVIOUR [None]
  - AGGRESSION [None]
  - AKATHISIA [None]
